FAERS Safety Report 6148304-9 (Version None)
Quarter: 2009Q2

REPORT INFORMATION
  Report Type: 
  Country: None (occurrence: None)
  Receive Date: 20090408
  Receipt Date: 20090402
  Transmission Date: 20091009
  Serious: Yes (Hospitalization)
  Sender: FDA-Public Use
  Company Number: US-KINGPHARMUSA00001-K200900377

PATIENT
  Age: 84 Year
  Sex: Female

DRUGS (13)
  1. ALTACE [Suspect]
     Indication: HYPERTENSION
     Dosage: 5 MG, QD
     Route: 048
     Dates: start: 20081020, end: 20081123
  2. HYDROCHLOROTHIAZIDE [Suspect]
     Indication: HYPERTENSION
     Dosage: 25 MG, QD
     Route: 048
     Dates: start: 20081020, end: 20081123
  3. TORSEMIDE [Suspect]
     Indication: HYPERTENSION
     Dosage: 10 MG, QD
     Route: 048
     Dates: start: 20081020
  4. XIPAMIDE [Suspect]
     Indication: HYPERTENSION
     Dosage: 20 MG, QD
     Route: 048
     Dates: start: 20081020, end: 20081123
  5. DURAGESIC-100 [Suspect]
     Indication: PAIN
     Dosage: 25 MG, QD
     Route: 048
     Dates: start: 20081001, end: 20081123
  6. ACTONEL [Concomitant]
     Indication: OSTEOPOROSIS
     Dosage: 35 MG, UNK
     Dates: start: 20081001
  7. AMITRIPTYLINE [Concomitant]
     Indication: DEPRESSION
     Dosage: 25 MG, UNK
     Route: 048
     Dates: start: 20040501
  8. ASPIRIN [Concomitant]
     Indication: PROPHYLAXIS
     Dosage: 100 MG, UNK
     Route: 048
     Dates: start: 20050101
  9. CALCIUM D3 STADA [Concomitant]
     Dosage: UNK %, UNK
     Route: 048
     Dates: start: 20081001
  10. DOMPERIDONE [Concomitant]
     Indication: ABDOMINAL DISTENSION
     Dosage: 30 MG, UNK
     Route: 048
     Dates: start: 20081001
  11. FLUVASTATIN [Concomitant]
     Indication: CARDIOVASCULAR EVENT PROPHYLAXIS
     Dosage: 80 MG, UNK
     Route: 048
     Dates: start: 20040501
  12. LATANOPROST [Concomitant]
     Indication: GLAUCOMA
     Dosage: 1 DF, UNK
  13. METOPROLOL [Concomitant]
     Indication: HYPERTENSION
     Dosage: 95 MG, UNK
     Route: 048
     Dates: start: 20040501

REACTIONS (9)
  - ACUTE PRERENAL FAILURE [None]
  - DEHYDRATION [None]
  - DISORIENTATION [None]
  - DRUG INTERACTION [None]
  - HEMIPARESIS [None]
  - HYPERNATRAEMIA [None]
  - HYPOPHAGIA [None]
  - NAUSEA [None]
  - OVERDOSE [None]
